FAERS Safety Report 11617463 (Version 1)
Quarter: 2015Q4

REPORT INFORMATION
  Report Type: Spontaneous
  Country: GB (occurrence: GB)
  Receive Date: 20151009
  Receipt Date: 20151009
  Transmission Date: 20160304
  Serious: Yes (Hospitalization)
  Sender: FDA-Public Use
  Company Number: GB-DEP_12819_2015

PATIENT
  Sex: Female

DRUGS (1)
  1. PALEXIA [Suspect]
     Active Substance: TAPENTADOL HYDROCHLORIDE
     Indication: PAIN
     Route: 048
     Dates: start: 20150819, end: 20150902

REACTIONS (1)
  - Rash generalised [Recovered/Resolved]

NARRATIVE: CASE EVENT DATE: 201509
